FAERS Safety Report 17554100 (Version 5)
Quarter: 2022Q1

REPORT INFORMATION
  Report Type: Spontaneous
  Country: PT (occurrence: PT)
  Receive Date: 20200318
  Receipt Date: 20220315
  Transmission Date: 20220423
  Serious: Yes (Hospitalization, Other)
  Sender: FDA-Public Use
  Company Number: PT-AUROBINDO-AUR-APL-2020-013677

PATIENT
  Age: 38 Year
  Sex: Male
  Weight: 93 kg

DRUGS (7)
  1. ACYCLOVIR [Suspect]
     Active Substance: ACYCLOVIR
     Indication: Product used for unknown indication
     Dosage: 400 MILLIGRAM
     Route: 065
     Dates: start: 20180322
  2. ITACITINIB [Suspect]
     Active Substance: ITACITINIB
     Indication: Acute graft versus host disease
     Dosage: 200 MILLIGRAM, ONCE A DAY
     Route: 048
     Dates: start: 20180424, end: 20180606
  3. METHYLPREDNISOLONE [Suspect]
     Active Substance: METHYLPREDNISOLONE
     Indication: Acute graft versus host disease
     Dosage: 100 MILLIGRAM, TWO TIMES A DAY
     Route: 042
     Dates: start: 20180424, end: 20180424
  4. NEORAL [Suspect]
     Active Substance: CYCLOSPORINE
     Indication: Product used for unknown indication
     Dosage: 170 MILLIGRAM
     Route: 065
     Dates: start: 20180403
  5. PREDNISONE [Suspect]
     Active Substance: PREDNISONE
     Indication: Acute graft versus host disease
     Dosage: 80 MILLIGRAM, 3 TIMES A DAY
     Route: 048
     Dates: start: 20180425, end: 20180508
  6. PREDNISONE [Suspect]
     Active Substance: PREDNISONE
     Dosage: 40 MILLIGRAM, 3 TIMES A DAY
     Route: 048
     Dates: start: 20180509
  7. PREDNISONE [Suspect]
     Active Substance: PREDNISONE
     Dosage: UNK
     Route: 048
     Dates: start: 20180605

REACTIONS (3)
  - Cytomegalovirus infection reactivation [Recovered/Resolved]
  - White blood cell count increased [Unknown]
  - Platelet count decreased [Unknown]

NARRATIVE: CASE EVENT DATE: 20180529
